FAERS Safety Report 18587138 (Version 1)
Quarter: 2020Q4

REPORT INFORMATION
  Report Type: Spontaneous
  Country: CZ (occurrence: CZ)
  Receive Date: 20201207
  Receipt Date: 20201207
  Transmission Date: 20210114
  Serious: Yes (Other)
  Sender: FDA-Public Use
  Company Number: CZ-TEVA-2020-CZ-1854970

PATIENT
  Age: 55 Year
  Sex: Female
  Weight: 60 kg

DRUGS (3)
  1. PURINOL [ALLOPURINOL] [Suspect]
     Active Substance: ALLOPURINOL
     Indication: JOINT SWELLING
     Dosage: 300 MILLIGRAM DAILY; 1 TABLET AFTER LUNCH
     Route: 048
     Dates: start: 20201006, end: 20201027
  2. PURINOL [ALLOPURINOL] [Suspect]
     Active Substance: ALLOPURINOL
     Indication: ARTHRALGIA
  3. EUTHYROX [Concomitant]
     Active Substance: LEVOTHYROXINE SODIUM
     Indication: HYPOTHYROIDISM
     Dosage: 50 MILLIGRAM DAILY; 1 TABLET IN THE MORNING
     Route: 048
     Dates: start: 2001, end: 20201112

REACTIONS (6)
  - Abdominal pain upper [Recovered/Resolved]
  - Spinal pain [Recovered/Resolved]
  - Flatulence [Not Recovered/Not Resolved]
  - Dyspepsia [Not Recovered/Not Resolved]
  - Arthralgia [Recovered/Resolved]
  - Nausea [Recovered/Resolved]

NARRATIVE: CASE EVENT DATE: 20201028
